FAERS Safety Report 24691148 (Version 1)
Quarter: 2024Q4

REPORT INFORMATION
  Report Type: Spontaneous
  Country: US (occurrence: None)
  Receive Date: 20241202
  Receipt Date: 20241202
  Transmission Date: 20250114
  Serious: Yes (unspecified)
  Sender: Public
  Company Number: None

PATIENT
  Age: 58 Year
  Sex: Female
  Weight: 133 kg

DRUGS (1)
  1. TEPEZZA [Suspect]
     Active Substance: TEPROTUMUMAB-TRBW
     Indication: Endocrine ophthalmopathy
     Dosage: 2820 MG EVERY 3 WEEKS INTRAVENOUS?
     Route: 042
     Dates: start: 20241010, end: 20241031

REACTIONS (5)
  - Diarrhoea [None]
  - Nausea [None]
  - Furuncle [None]
  - Irritable bowel syndrome [None]
  - Tinnitus [None]

NARRATIVE: CASE EVENT DATE: 20241113
